FAERS Safety Report 21136248 (Version 1)
Quarter: 2022Q3

REPORT INFORMATION
  Report Type: Spontaneous
  Country: US (occurrence: US)
  Receive Date: 20220727
  Receipt Date: 20220727
  Transmission Date: 20221026
  Serious: Yes (Hospitalization, Other)
  Sender: FDA-Public Use
  Company Number: US-MLMSERVICE-20220714-3674180-1

PATIENT
  Age: 81 Year
  Sex: Female

DRUGS (1)
  1. METHOTREXATE [Suspect]
     Active Substance: METHOTREXATE
     Indication: Rheumatoid arthritis

REACTIONS (5)
  - Renal impairment [Recovered/Resolved]
  - Pulmonary arterial pressure increased [Recovered/Resolved]
  - Hypercalcaemia [Recovered/Resolved]
  - Diastolic dysfunction [Unknown]
  - Granulomatous pneumonitis [Recovered/Resolved]
